FAERS Safety Report 10258195 (Version 1)
Quarter: 2014Q2

REPORT INFORMATION
  Report Type: Spontaneous
  Country: US (occurrence: None)
  Receive Date: 20140623
  Receipt Date: 20140623
  Transmission Date: 20141212
  Serious: Yes (Hospitalization)
  Sender: FDA-Public Use
  Company Number: UNT-2014-002333

PATIENT
  Age: 58 Year
  Sex: Female
  Weight: 88.4 kg

DRUGS (3)
  1. REMODULIN (TREPROSTINIL SODIUM) INJECTION, 2.5MG/ML [Suspect]
     Indication: COR PULMONALE CHRONIC
     Dosage: CONTINUING
     Route: 058
     Dates: start: 20111206
  2. ADCIRCA (TADALAFIL) [Concomitant]
  3. COUMADIN (WARFARIN SODIUM) [Concomitant]

REACTIONS (2)
  - Dyspnoea [None]
  - Hypoxia [None]
